FAERS Safety Report 18574628 (Version 1)
Quarter: 2020Q4

REPORT INFORMATION
  Report Type: Report from Study
  Country: US (occurrence: US)
  Receive Date: 20201203
  Receipt Date: 20201203
  Transmission Date: 20210114
  Serious: Yes (Other)
  Sender: FDA-Public Use
  Company Number: US-MYLANLABS-2020M1098919

PATIENT
  Age: 52 Year
  Sex: Female

DRUGS (6)
  1. ITRACONAZOLE. [Suspect]
     Active Substance: ITRACONAZOLE
     Dosage: 200 MILLIGRAM, Q8H
     Route: 065
  2. ITRACONAZOLE. [Suspect]
     Active Substance: ITRACONAZOLE
     Dosage: BID, 200 MG IN THE MORNING AND 100 IN THE EVENING
     Route: 065
  3. ITRACONAZOLE. [Suspect]
     Active Substance: ITRACONAZOLE
     Dosage: 100 MILLIGRAM, QD
     Route: 065
  4. ITRACONAZOLE. [Suspect]
     Active Substance: ITRACONAZOLE
     Indication: PNEUMONIA BLASTOMYCES
     Dosage: 100 MILLIGRAM, BID
     Route: 065
  5. ITRACONAZOLE. [Suspect]
     Active Substance: ITRACONAZOLE
     Dosage: 200 MILLIGRAM, BID
     Route: 065
  6. ITRACONAZOLE. [Suspect]
     Active Substance: ITRACONAZOLE
     Dosage: 200 MILLIGRAM, TID THRICE A DAY AS A LOADING DOSE AT THE INITIATION OF THERAPY
     Route: 048

REACTIONS (4)
  - Hypokalaemia [Recovered/Resolved]
  - Hypertension [Recovered/Resolved]
  - Oedema [Recovered/Resolved]
  - Metabolic acidosis [Recovered/Resolved]
